FAERS Safety Report 8691706 (Version 2)
Quarter: 2012Q4

REPORT INFORMATION
  Report Type: 
  Country: US (occurrence: US)
  Receive Date: 20120730
  Receipt Date: 20120904
  Transmission Date: 20130627
  Serious: Yes (Hospitalization, Other)
  Sender: FDA-Public Use
  Company Number: US-ROCHE-1090119

PATIENT
  Age: 6 Year
  Sex: Male
  Weight: 18 kg

DRUGS (10)
  1. NUTROPIN [Suspect]
     Indication: PRODUCT USED FOR UNKNOWN INDICATION
     Route: 065
     Dates: start: 20120308
  2. EPOGEN [Suspect]
     Indication: ANAEMIA
     Dosage: Illegible text of unit for the dose.
     Route: 058
     Dates: start: 20120409
  3. EPOGEN [Suspect]
     Indication: RENAL FAILURE CHRONIC
  4. PHOSLO [Concomitant]
     Indication: HYPERPHOSPHATAEMIA
     Route: 048
     Dates: start: 20120109
  5. RENVELA [Concomitant]
     Indication: HYPERPHOSPHATAEMIA
     Route: 048
     Dates: start: 20120109
  6. PRAVACHOL [Concomitant]
     Indication: DYSLIPIDAEMIA
     Route: 048
     Dates: start: 20120426
  7. FERROUS SULFATE [Concomitant]
     Indication: IRON DEFICIENCY
     Route: 048
     Dates: start: 20120229
  8. FOLIC ACID [Concomitant]
     Indication: RENAL FAILURE CHRONIC
     Route: 048
     Dates: start: 20120109
  9. ELAVIL [Concomitant]
     Indication: MIGRAINE
     Route: 048
  10. COLACE [Concomitant]
     Indication: CONSTIPATION
     Route: 048

REACTIONS (2)
  - Feeling abnormal [Unknown]
  - Anaemia [Recovering/Resolving]
